FAERS Safety Report 8138693-8 (Version None)
Quarter: 2012Q1

REPORT INFORMATION
  Report Type: 
  Country: None (occurrence: None)
  Receive Date: 20120215
  Receipt Date: 20120210
  Transmission Date: 20120608
  Serious: Yes (Death, Other)
  Sender: FDA-Public Use
  Company Number: PR-BAYER-2011-123856

PATIENT
  Age: 67 Year
  Sex: Male

DRUGS (1)
  1. NEXAVAR [Suspect]
     Indication: HEPATIC NEOPLASM MALIGNANT
     Dosage: 400 MG, BID
     Route: 048
     Dates: start: 20111217, end: 20111223

REACTIONS (6)
  - DEATH [None]
  - DECREASED APPETITE [None]
  - LETHARGY [None]
  - ABASIA [None]
  - HYPERTENSION [None]
  - HYPOAESTHESIA [None]
